FAERS Safety Report 7266975-0 (Version None)
Quarter: 2011Q1

REPORT INFORMATION
  Report Type: 
  Country: None (occurrence: None)
  Receive Date: 20110201
  Receipt Date: 20110118
  Transmission Date: 20110831
  Serious: Yes (Hospitalization)
  Sender: FDA-Public Use
  Company Number: US-CELGENEUS-163-21880-10121896

PATIENT
  Sex: Male

DRUGS (12)
  1. FLUTICASONE-SALMETEROL [Concomitant]
     Route: 065
  2. TIOTROPIUM BROMIDE [Concomitant]
     Route: 065
  3. VITAMIN D [Concomitant]
     Dosage: 2,000UNITS
     Route: 048
  4. OMEPRAZOLE [Concomitant]
     Route: 048
  5. PREDNISONE [Concomitant]
     Route: 048
  6. ACETAMINOPHEN [Concomitant]
     Route: 048
  7. ALBUTEROL [Concomitant]
     Route: 065
  8. ASPIRIN [Concomitant]
     Route: 048
  9. DIAZEPAM [Concomitant]
     Route: 048
  10. REVLIMID [Suspect]
     Indication: MYELODYSPLASTIC SYNDROME
     Route: 048
     Dates: start: 20101214, end: 20110101
  11. ISOSORBIDE MONONITRATE [Concomitant]
     Route: 048
  12. NITROGLYCERIN [Concomitant]
     Route: 060

REACTIONS (5)
  - FALL [None]
  - PNEUMONIA [None]
  - DEMENTIA [None]
  - ASTHENIA [None]
  - URINARY RETENTION [None]
